FAERS Safety Report 6355332-7 (Version None)
Quarter: 2009Q3

REPORT INFORMATION
  Report Type: 
  Country: None (occurrence: None)
  Receive Date: 20090914
  Receipt Date: 20090831
  Transmission Date: 20100115
  Serious: Yes (Other)
  Sender: FDA-Public Use
  Company Number: PHHY2009MX34858

PATIENT
  Age: 71 Year
  Sex: Female

DRUGS (3)
  1. DIOVAN HCT [Suspect]
     Indication: HYPERTENSION
     Dosage: 2 DF (160/25 MG) PER DAY
     Dates: start: 20020101
  2. DIOVAN HCT [Suspect]
     Dosage: 1.5 DF (160/25 MG) DAILY
  3. MELOXICAM [Concomitant]
     Indication: ARTHRITIS
     Dosage: 1 DF/ DAY

REACTIONS (11)
  - ANGER [None]
  - ARTHRALGIA [None]
  - BLOOD PRESSURE DECREASED [None]
  - BLOOD PRESSURE FLUCTUATION [None]
  - BONE PAIN [None]
  - GAIT DISTURBANCE [None]
  - MYALGIA [None]
  - SKIN ULCER [None]
  - VARICOSE ULCERATION [None]
  - VARICOSE VEIN [None]
  - VENOUS INSUFFICIENCY [None]
